FAERS Safety Report 25991028 (Version 1)
Quarter: 2025Q4

REPORT INFORMATION
  Report Type: Spontaneous
  Country: US (occurrence: US)
  Receive Date: 20251103
  Receipt Date: 20251103
  Transmission Date: 20260119
  Serious: Yes (Hospitalization)
  Sender: GRIFOLS
  Company Number: US-IGSA-BIG0039222

PATIENT
  Age: 63 Year
  Sex: Female
  Weight: 94.785 kg

DRUGS (18)
  1. PROLASTIN-C LIQUID [Suspect]
     Active Substance: .ALPHA.1-PROTEINASE INHIBITOR HUMAN
     Indication: Alpha-1 antitrypsin deficiency
     Dosage: 5904 MILLIGRAM, Q.WK.
     Route: 042
  2. ELIQUIS [Concomitant]
     Active Substance: APIXABAN
  3. DIPHENHYDRAMINE HYDROCHLORIDE [Concomitant]
     Active Substance: DIPHENHYDRAMINE HYDROCHLORIDE
  4. EPINEPHRINE [Concomitant]
     Active Substance: EPINEPHRINE
  5. LIDOCAINE [Concomitant]
     Active Substance: LIDOCAINE
  6. SODIUM CHLORIDE [Concomitant]
     Active Substance: SODIUM CHLORIDE
  7. PLAVIX [Concomitant]
     Active Substance: CLOPIDOGREL BISULFATE
     Dosage: UNK
  8. EMGALITY [Concomitant]
     Active Substance: GALCANEZUMAB-GNLM
  9. LEVOCETIRIZINE DIHYDROCHLORIDE [Concomitant]
     Active Substance: LEVOCETIRIZINE DIHYDROCHLORIDE
  10. OXYCODONE AND ACETAMINOPHEN [Concomitant]
     Active Substance: ACETAMINOPHEN\OXYCODONE HYDROCHLORIDE
  11. IPRATROPIUM BROMIDE [Concomitant]
     Active Substance: IPRATROPIUM BROMIDE
  12. PREDNISONE [Concomitant]
     Active Substance: PREDNISONE
     Dosage: UNK
  13. ALBUTEROL SULFATE [Concomitant]
     Active Substance: ALBUTEROL SULFATE
     Dosage: UNK
  14. CITALOPRAM HYDROBROMIDE [Concomitant]
     Active Substance: CITALOPRAM HYDROBROMIDE
  15. NURTEC ODT [Concomitant]
     Active Substance: RIMEGEPANT SULFATE
  16. GENTAMICIN SULFATE [Concomitant]
     Active Substance: GENTAMICIN SULFATE
  17. ERYTHROMYCIN [Concomitant]
     Active Substance: ERYTHROMYCIN
  18. METOPROLOL TARTRATE [Concomitant]
     Active Substance: METOPROLOL TARTRATE

REACTIONS (2)
  - Intentional dose omission [Unknown]
  - Illness [Unknown]

NARRATIVE: CASE EVENT DATE: 20250716
